FAERS Safety Report 24784302 (Version 1)
Quarter: 2024Q4

REPORT INFORMATION
  Report Type: Spontaneous
  Country: BR (occurrence: BR)
  Receive Date: 20241227
  Receipt Date: 20241227
  Transmission Date: 20250115
  Serious: Yes (Death, Hospitalization, Other)
  Sender: ASCENT PHARMACEUTICALS INC
  Company Number: BR-ASCENT-2024ASLIT00091

PATIENT
  Age: 43 Year
  Sex: Female

DRUGS (1)
  1. IBUPROFEN [Suspect]
     Active Substance: IBUPROFEN
     Indication: Product used for unknown indication
     Route: 048

REACTIONS (9)
  - Hepatic failure [Fatal]
  - Anuria [Fatal]
  - Renal failure [Fatal]
  - Myalgia [Fatal]
  - Nausea [Fatal]
  - Jaundice [Fatal]
  - Intentional overdose [Unknown]
  - Toxicity to various agents [Unknown]
  - Intentional product misuse [Unknown]
